FAERS Safety Report 9129511 (Version 1)
Quarter: 2013Q1

REPORT INFORMATION
  Report Type: Spontaneous
  Country: DE (occurrence: DE)
  Receive Date: 20130125
  Receipt Date: 20130125
  Transmission Date: 20140127
  Serious: Yes (Other)
  Sender: FDA-Public Use
  Company Number: DE-PFIZER INC-2013025914

PATIENT
  Sex: Female

DRUGS (1)
  1. TORISEL [Suspect]
     Route: 042

REACTIONS (1)
  - Cardiovascular insufficiency [Unknown]
